FAERS Safety Report 15824795 (Version 1)
Quarter: 2019Q1

REPORT INFORMATION
  Report Type: Spontaneous
  Country: IT (occurrence: IT)
  Receive Date: 20190115
  Receipt Date: 20190115
  Transmission Date: 20190417
  Serious: Yes (Other)
  Sender: FDA-Public Use
  Company Number: IT-AMGEN-ITASP2019003290

PATIENT
  Age: 86 Year
  Sex: Male

DRUGS (9)
  1. SOLDESAM [Concomitant]
     Active Substance: DEXAMETHASONE
     Dosage: 14 GTT, UNK
     Route: 048
  2. OMEPRAZEN [Concomitant]
     Active Substance: OMEPRAZOLE
     Dosage: 20 MG, UNK
     Route: 048
  3. XGEVA [Suspect]
     Active Substance: DENOSUMAB
     Indication: PROSTATE CANCER METASTATIC
     Dosage: 120 MG, UNK
     Route: 065
  4. ELIGARD [Concomitant]
     Active Substance: LEUPROLIDE ACETATE
     Dosage: UNK
     Route: 058
  5. DIBASE [Concomitant]
     Active Substance: CHOLECALCIFEROL
     Dosage: 1 KBQ, UNK
     Route: 048
  6. ELIQUIS [Concomitant]
     Active Substance: APIXABAN
     Indication: DEEP VEIN THROMBOSIS
     Dosage: 2 KBQ, UNK
     Route: 048
  7. ZOMETA [Suspect]
     Active Substance: ZOLEDRONIC ACID
     Indication: PROSTATE CANCER METASTATIC
     Dosage: 4 MG, UNK
     Route: 042
  8. PRINIVIL [Concomitant]
     Active Substance: LISINOPRIL
     Dosage: 5 MG, UNK
  9. SEREUPIN [Concomitant]
     Active Substance: PAROXETINE HYDROCHLORIDE
     Dosage: 20 MG, UNK
     Route: 048

REACTIONS (2)
  - Gingivitis [Recovering/Resolving]
  - Osteonecrosis of jaw [Recovering/Resolving]

NARRATIVE: CASE EVENT DATE: 20180701
